FAERS Safety Report 5732673-5 (Version None)
Quarter: 2008Q2

REPORT INFORMATION
  Report Type: 
  Country: None (occurrence: None)
  Receive Date: 20080509
  Receipt Date: 20080425
  Transmission Date: 20081010
  Serious: Yes (Other)
  Sender: FDA-Public Use
  Company Number: US-BAYER-200717297NA

PATIENT
  Age: 24 Year
  Sex: Female
  Weight: 68 kg

DRUGS (2)
  1. MAGNEVIST [Suspect]
     Indication: ARTHROGRAM
     Dosage: TOTAL DAILY DOSE: 15 GTT
     Route: 014
     Dates: start: 20071126, end: 20071126
  2. ULTRAVIST (PHARMACY BULK) [Suspect]
     Indication: ARTHROGRAM
     Dosage: TOTAL DAILY DOSE: 5 ML
     Route: 014
     Dates: start: 20071126, end: 20071126

REACTIONS (8)
  - CONVULSION [None]
  - DIZZINESS [None]
  - EYE ROLLING [None]
  - HEART RATE INCREASED [None]
  - HYPOAESTHESIA [None]
  - LOSS OF CONSCIOUSNESS [None]
  - PARAESTHESIA [None]
  - UNRESPONSIVE TO STIMULI [None]
